FAERS Safety Report 4954219-1 (Version None)
Quarter: 2006Q1

REPORT INFORMATION
  Report Type: 
  Country: None (occurrence: None)
  Receive Date: 20060327
  Receipt Date: 20060315
  Transmission Date: 20060701
  Serious: Yes (Hospitalization)
  Sender: FDA-Public Use
  Company Number: US-BRISTOL-MYERS SQUIBB COMPANY-13315486

PATIENT
  Age: 55 Year
  Sex: Female

DRUGS (5)
  1. ARIPIPRAZOLE [Suspect]
     Indication: SCHIZOPHRENIA, PARANOID TYPE
     Route: 048
  2. THIORIDAZINE HCL [Concomitant]
     Indication: SCHIZOPHRENIA, PARANOID TYPE
  3. ALPRAZOLAM [Concomitant]
  4. VALPROIC ACID [Concomitant]
  5. RISPERIDONE [Concomitant]

REACTIONS (1)
  - SCHIZOPHRENIA [None]
